FAERS Safety Report 7344764-6 (Version None)
Quarter: 2011Q1

REPORT INFORMATION
  Report Type: 
  Country: None (occurrence: None)
  Receive Date: 20110307
  Receipt Date: 20110307
  Transmission Date: 20110831
  Serious: No
  Sender: FDA-Public Use
  Company Number: None

PATIENT
  Age: 49 Year
  Sex: Female
  Weight: 62.5964 kg

DRUGS (1)
  1. OMEPRAZOLE [Suspect]
     Indication: GASTRITIS
     Dosage: 20 MG 1 PO
     Route: 048
     Dates: start: 20090101, end: 20110301

REACTIONS (3)
  - TETANY [None]
  - HYPOAESTHESIA [None]
  - BLOOD MAGNESIUM DECREASED [None]
